FAERS Safety Report 12881996 (Version 1)
Quarter: 2016Q4

REPORT INFORMATION
  Report Type: Report from Study
  Country: MY (occurrence: MY)
  Receive Date: 20161025
  Receipt Date: 20161025
  Transmission Date: 20170207
  Serious: Yes (Death, Life-Threatening, Hospitalization, Disabling)
  Sender: FDA-Public Use
  Company Number: MY-JNJFOC-20161013687

PATIENT
  Age: 49 Year
  Sex: Male

DRUGS (17)
  1. DOXORUBICIN HYDROCHLORIDE. [Suspect]
     Active Substance: DOXORUBICIN HYDROCHLORIDE
     Indication: DIFFUSE LARGE B-CELL LYMPHOMA
     Route: 042
  2. PARACETAMOL [Concomitant]
     Active Substance: ACETAMINOPHEN
     Indication: PYREXIA
     Route: 048
     Dates: start: 20131205, end: 20131213
  3. VINCRISTINE [Suspect]
     Active Substance: VINCRISTINE
     Indication: DIFFUSE LARGE B-CELL LYMPHOMA
     Route: 065
  4. PIRITON [Concomitant]
     Active Substance: CHLORPHENIRAMINE MALEATE
     Indication: PREMEDICATION
     Route: 042
     Dates: start: 20131003, end: 20131004
  5. POTASSIUM CHLORIDE. [Concomitant]
     Active Substance: POTASSIUM CHLORIDE
     Route: 048
     Dates: start: 20131001, end: 20131001
  6. RITUXIMAB [Suspect]
     Active Substance: RITUXIMAB
     Indication: DIFFUSE LARGE B-CELL LYMPHOMA
     Route: 042
     Dates: start: 20130928
  7. CYCLOPHOSPHAMIDE. [Suspect]
     Active Substance: CYCLOPHOSPHAMIDE
     Indication: DIFFUSE LARGE B-CELL LYMPHOMA
     Route: 065
  8. HYDROCORTISONE. [Concomitant]
     Active Substance: HYDROCORTISONE
     Indication: PREMEDICATION
     Dosage: 1 DAY
     Route: 042
     Dates: start: 20131003, end: 20131004
  9. PIRITON [Concomitant]
     Active Substance: CHLORPHENIRAMINE MALEATE
     Indication: PREMEDICATION
     Route: 042
     Dates: start: 20130930, end: 20130930
  10. PIRITON [Concomitant]
     Active Substance: CHLORPHENIRAMINE MALEATE
     Indication: PREMEDICATION
     Route: 042
     Dates: start: 20131012, end: 20131012
  11. ROCEPHIN [Concomitant]
     Active Substance: CEFTRIAXONE SODIUM
     Indication: PYREXIA
     Route: 042
     Dates: start: 20130929, end: 20131007
  12. AMLODIPINE [Concomitant]
     Active Substance: AMLODIPINE BESYLATE
     Indication: HYPERTENSION
     Route: 048
     Dates: start: 20131115, end: 20131210
  13. RITUXIMAB [Suspect]
     Active Substance: RITUXIMAB
     Indication: DIFFUSE LARGE B-CELL LYMPHOMA
     Route: 042
     Dates: end: 20131129
  14. HYDROCORTISONE. [Concomitant]
     Active Substance: HYDROCORTISONE
     Indication: PREMEDICATION
     Dosage: 1 DAY
     Route: 042
     Dates: start: 20131012, end: 20131012
  15. HYDROCORTISONE. [Concomitant]
     Active Substance: HYDROCORTISONE
     Indication: PREMEDICATION
     Dosage: 2 DAYS
     Route: 042
     Dates: start: 20130930, end: 20130930
  16. NEUPOGEN [Concomitant]
     Active Substance: FILGRASTIM
     Indication: NEUTROPENIA
     Route: 058
     Dates: start: 20131007, end: 20131008
  17. PREDNISONE. [Suspect]
     Active Substance: PREDNISONE
     Indication: DIFFUSE LARGE B-CELL LYMPHOMA
     Route: 065

REACTIONS (4)
  - Neutrophil count decreased [Recovered/Resolved]
  - Sepsis [Recovered/Resolved]
  - Pneumonitis [Fatal]
  - Thrombosis [Fatal]

NARRATIVE: CASE EVENT DATE: 20131007
